FAERS Safety Report 18252898 (Version 1)
Quarter: 2020Q3

REPORT INFORMATION
  Report Type: Spontaneous
  Country: US (occurrence: US)
  Receive Date: 20200910
  Receipt Date: 20200910
  Transmission Date: 20201103
  Serious: Yes (Death, Life-Threatening, Hospitalization, Disabling)
  Sender: FDA-Public Use
  Company Number: None

PATIENT
  Age: 63 Year
  Sex: Male
  Weight: 135 kg

DRUGS (3)
  1. HUMIRA [Suspect]
     Active Substance: ADALIMUMAB
     Indication: RHEUMATOID ARTHRITIS
     Dosage: ?          OTHER STRENGTH:50;?
     Route: 030
     Dates: start: 20161101, end: 20200217
  2. TEGRETOL [Concomitant]
     Active Substance: CARBAMAZEPINE
  3. MOBIC [Concomitant]
     Active Substance: MELOXICAM

REACTIONS (2)
  - Influenza [None]
  - Lymphoma [None]
